FAERS Safety Report 6845824-6 (Version None)
Quarter: 2010Q3

REPORT INFORMATION
  Report Type: 
  Country: None (occurrence: None)
  Receive Date: 20100715
  Receipt Date: 20070827
  Transmission Date: 20110219
  Serious: No
  Sender: FDA-Public Use
  Company Number: US-PFIZER INC-2007073010

PATIENT
  Sex: Female
  Weight: 81.818 kg

DRUGS (10)
  1. CHANTIX [Suspect]
     Indication: SMOKING CESSATION THERAPY
     Dates: start: 20070809
  2. KLONOPIN [Suspect]
     Indication: ANXIETY DISORDER
  3. KLONOPIN [Suspect]
     Indication: PANIC DISORDER
  4. TUMS [Concomitant]
     Indication: ABDOMINAL DISCOMFORT
     Dates: start: 20070801
  5. DEPAKOTE [Concomitant]
     Indication: ANXIETY DISORDER
  6. DEPAKOTE [Concomitant]
     Indication: PANIC DISORDER
  7. PROZAC [Concomitant]
     Indication: ANXIETY DISORDER
  8. PROZAC [Concomitant]
     Indication: PANIC DISORDER
  9. KLONOPIN [Concomitant]
  10. KLONOPIN [Concomitant]

REACTIONS (11)
  - ABDOMINAL DISCOMFORT [None]
  - ANXIETY [None]
  - DECREASED APPETITE [None]
  - FORMICATION [None]
  - HYPERHIDROSIS [None]
  - IRRITABILITY [None]
  - NERVOUSNESS [None]
  - PAROSMIA [None]
  - PILOERECTION [None]
  - SCREAMING [None]
  - SOMNOLENCE [None]
